FAERS Safety Report 6160809-3 (Version None)
Quarter: 2009Q2

REPORT INFORMATION
  Report Type: 
  Country: None (occurrence: None)
  Receive Date: 20090420
  Receipt Date: 20090415
  Transmission Date: 20091009
  Serious: No
  Sender: FDA-Public Use
  Company Number: US-B.I. PHARMACEUTICALS,INC./RIDGEFIELD-2008-BP-06468BP

PATIENT
  Sex: Male

DRUGS (8)
  1. SPIRIVA [Suspect]
     Indication: CHRONIC OBSTRUCTIVE PULMONARY DISEASE
     Dates: start: 20080101
  2. SPIRIVA [Suspect]
     Indication: EMPHYSEMA
  3. SPIRIVA [Suspect]
     Indication: DYSPNOEA
  4. ALBUTEROL SULFATE [Concomitant]
     Indication: DYSPNOEA
  5. ATROVENT [Concomitant]
     Indication: DYSPNOEA
  6. COMBIVENT [Concomitant]
     Indication: DYSPNOEA
  7. OTHER PRESCRIPTION MEDICATION [Concomitant]
     Indication: DYSPNOEA
  8. FLOVENT [Concomitant]
     Indication: DYSPNOEA

REACTIONS (1)
  - DRUG HYPERSENSITIVITY [None]
